FAERS Safety Report 11656820 (Version 1)
Quarter: 2015Q4

REPORT INFORMATION
  Report Type: Spontaneous
  Country: US (occurrence: US)
  Receive Date: 20151023
  Receipt Date: 20151023
  Transmission Date: 20160304
  Serious: No
  Sender: FDA-Public Use
  Company Number: US-PFIZER INC-2015343262

PATIENT
  Sex: Female

DRUGS (1)
  1. ADVIL [Suspect]
     Active Substance: IBUPROFEN
     Indication: BACK DISORDER
     Dosage: UNK, (2 ADVIL - 2 IN THE MORNING, 2 AT NOON, AND 2 AT NIGHT)

REACTIONS (1)
  - Diarrhoea [Unknown]
